FAERS Safety Report 4296726-3 (Version None)
Quarter: 2004Q1

REPORT INFORMATION
  Report Type: 
  Country: None (occurrence: None)
  Receive Date: 20040217
  Receipt Date: 20040205
  Transmission Date: 20041129
  Serious: Yes (Disabling, Other)
  Sender: FDA-Public Use
  Company Number: WAES 0402USA00709

PATIENT
  Age: 39 Year
  Sex: Female
  Weight: 75 kg

DRUGS (1)
  1. VIOXX [Suspect]
     Indication: LIMB INJURY
     Route: 048
     Dates: start: 20020701, end: 20021101

REACTIONS (9)
  - CERVIX CARCINOMA [None]
  - DEPRESSION [None]
  - DYSPNOEA [None]
  - JOINT INJURY [None]
  - MENTAL DISORDER [None]
  - PANIC DISORDER [None]
  - ROAD TRAFFIC ACCIDENT [None]
  - SWELLING FACE [None]
  - TUBERCULOSIS [None]
